FAERS Safety Report 6741980-9 (Version None)
Quarter: 2010Q2

REPORT INFORMATION
  Report Type: 
  Country: None (occurrence: None)
  Receive Date: 20100526
  Receipt Date: 20100518
  Transmission Date: 20101027
  Serious: Yes (Death, Life-Threatening, Other)
  Sender: FDA-Public Use
  Company Number: US-ROCHE-704131

PATIENT
  Sex: Female

DRUGS (2)
  1. ACTEMRA [Suspect]
     Indication: DRUG USE FOR UNKNOWN INDICATION
     Dosage: FORM: INFUSION, RECEIVED 4TH INFUSION
     Route: 065
  2. ACTEMRA [Suspect]
     Dosage: FORM: INFUSION, FIFTH INFUSION
     Route: 065
     Dates: start: 20100517, end: 20100517

REACTIONS (6)
  - ANAPHYLACTIC REACTION [None]
  - ANAPHYLACTIC SHOCK [None]
  - APNOEA [None]
  - CARDIOPULMONARY FAILURE [None]
  - COMA [None]
  - HYPOTENSION [None]
